FAERS Safety Report 8307640 (Version 3)
Quarter: 2013Q3

REPORT INFORMATION
  Report Type: Report from Study
  Country: CA (occurrence: CA)
  Receive Date: 20111222
  Receipt Date: 20130820
  Transmission Date: 20140515
  Serious: Yes (Other)
  Sender: FDA-Public Use
  Company Number: CA-UCBSA-047534

PATIENT
  Age: 48 Year
  Sex: Female
  Weight: 90.9 kg

DRUGS (7)
  1. CIMZIA [Suspect]
     Indication: RHEUMATOID ARTHRITIS
     Dosage: Q2 WEEKS
     Route: 058
     Dates: start: 20110519, end: 20121206
  2. CIMZIA [Suspect]
     Indication: RHEUMATOID ARTHRITIS
     Route: 058
     Dates: start: 20110403, end: 20110505
  3. HCTZ [Concomitant]
     Indication: HYPERTENSION
     Route: 048
     Dates: start: 20111205
  4. SULFASALAZINE [Concomitant]
     Indication: RHEUMATOID ARTHRITIS
     Route: 048
     Dates: start: 20100127
  5. PLAQUENIL [Concomitant]
     Indication: RHEUMATOID ARTHRITIS
     Route: 048
     Dates: start: 20100712
  6. NPH INSULIN [Concomitant]
     Indication: DIABETES MELLITUS
     Route: 058
  7. AVAPRO [Concomitant]
     Indication: HYPERTENSION
     Route: 048
     Dates: start: 20111205

REACTIONS (3)
  - Diabetic foot [Recovering/Resolving]
  - Abscess limb [Not Recovered/Not Resolved]
  - Hypertension [Recovering/Resolving]
